FAERS Safety Report 25447703 (Version 1)
Quarter: 2025Q2

REPORT INFORMATION
  Report Type: Report from Study
  Country: US (occurrence: US)
  Receive Date: 20250617
  Receipt Date: 20250617
  Transmission Date: 20250717
  Serious: Yes (Other)
  Sender: ELI LILLY AND COMPANY
  Company Number: US-ELI_LILLY_AND_COMPANY-US202506004773

PATIENT
  Age: 10 Year
  Sex: Male

DRUGS (5)
  1. OLUMIANT [Suspect]
     Active Substance: BARICITINIB
     Indication: Febrile infection-related epilepsy syndrome
     Dosage: 4 MG, DAILY
     Route: 065
  2. OLUMIANT [Suspect]
     Active Substance: BARICITINIB
     Dosage: 2 MG, DAILY
     Route: 065
  3. MIDAZOLAM [Concomitant]
     Active Substance: MIDAZOLAM
     Indication: Febrile infection-related epilepsy syndrome
     Route: 065
  4. PENTOBARBITAL [Concomitant]
     Active Substance: PENTOBARBITAL
     Indication: Febrile infection-related epilepsy syndrome
     Route: 065
  5. KETAMINE [Concomitant]
     Active Substance: KETAMINE
     Indication: Febrile infection-related epilepsy syndrome
     Route: 065

REACTIONS (6)
  - Bacteraemia [Unknown]
  - Drug-induced liver injury [Unknown]
  - Pneumonia [Unknown]
  - Tracheitis [Unknown]
  - Urinary tract infection [Unknown]
  - Off label use [Unknown]
